FAERS Safety Report 25298478 (Version 1)
Quarter: 2025Q2

REPORT INFORMATION
  Report Type: Spontaneous
  Country: US (occurrence: US)
  Receive Date: 20250512
  Receipt Date: 20250512
  Transmission Date: 20250717
  Serious: Yes (Life-Threatening, Other)
  Sender: AUROBINDO
  Company Number: US-AUROBINDO-AUR-APL-2025-023777

PATIENT
  Age: 74 Year
  Sex: Female

DRUGS (5)
  1. CARBOPLATIN [Suspect]
     Active Substance: CARBOPLATIN
     Indication: Metastatic salivary gland cancer
     Route: 065
     Dates: start: 202206
  2. PACLITAXEL [Suspect]
     Active Substance: PACLITAXEL
     Indication: Metastatic salivary gland cancer
     Route: 065
     Dates: start: 202206
  3. ALECTINIB [Suspect]
     Active Substance: ALECTINIB
     Indication: Metastatic salivary gland cancer
     Dosage: 600 MILLIGRAM, TWO TIMES A DAY
     Route: 065
     Dates: start: 202208
  4. ALECTINIB [Suspect]
     Active Substance: ALECTINIB
     Route: 065
     Dates: start: 202211
  5. ALECTINIB [Suspect]
     Active Substance: ALECTINIB
     Dosage: 450 MILLIGRAM, TWO TIMES A DAY
     Route: 065
     Dates: start: 202212

REACTIONS (1)
  - Drug ineffective [Unknown]
